FAERS Safety Report 23130119 (Version 1)
Quarter: 2023Q4

REPORT INFORMATION
  Report Type: Spontaneous
  Country: IT (occurrence: IT)
  Receive Date: 20231031
  Receipt Date: 20231031
  Transmission Date: 20240110
  Serious: Yes (Hospitalization, Disabling)
  Sender: FDA-Public Use
  Company Number: None

PATIENT
  Age: 49 Year
  Sex: Male
  Weight: 68 kg

DRUGS (4)
  1. BORTEZOMIB [Suspect]
     Active Substance: BORTEZOMIB
     Indication: Plasma cell myeloma
     Dosage: 1 DF, Q28D (1.3 MG/M2 DAY 1, 4, 8, 11 CYCLE)
     Route: 058
     Dates: start: 20230519, end: 20230721
  2. THALIDOMIDE [Concomitant]
     Active Substance: THALIDOMIDE
     Indication: Plasma cell myeloma
     Dosage: QD100 MG 29/6-13/7 FR SKINRASH,14/7 50 MGDIS21/7
     Route: 048
     Dates: start: 20230519, end: 20230721
  3. DARATUMUMAB [Concomitant]
     Active Substance: DARATUMUMAB
     Indication: Plasma cell myeloma
     Dosage: 1800 MG,QW (9 WEKS DIS FR NEUPATHY G 1 III CYCLE)
     Route: 058
     Dates: start: 20230519, end: 20230714
  4. DEXAMETHASONE [Concomitant]
     Active Substance: DEXAMETHASONE
     Indication: Plasma cell myeloma
     Dosage: 40 MILLIGRAM, BIWEEKLY
     Route: 048
     Dates: start: 20230519, end: 20230905

REACTIONS (1)
  - Mononeuropathy multiplex [Recovering/Resolving]

NARRATIVE: CASE EVENT DATE: 20230721
